FAERS Safety Report 7109869-3 (Version None)
Quarter: 2010Q4

REPORT INFORMATION
  Report Type: 
  Country: None (occurrence: None)
  Receive Date: 20101118
  Receipt Date: 20101026
  Transmission Date: 20110411
  Serious: No
  Sender: FDA-Public Use
  Company Number: US-MYLANLABS-2010S1017798

PATIENT
  Age: 52 Year
  Sex: Female

DRUGS (7)
  1. ALENDRONATE SODIUM [Suspect]
     Indication: OSTEOPOROSIS
     Route: 048
     Dates: start: 20100215, end: 20100401
  2. AMITRIPTYLINE HCL [Suspect]
     Indication: VULVOVAGINAL PAIN
     Route: 048
     Dates: start: 20050101, end: 20091001
  3. AMITRIPTYLINE HCL [Suspect]
     Route: 048
     Dates: start: 20091001, end: 20101001
  4. ALENDRONATE SODIUM [Suspect]
  5. VITAMINS [Concomitant]
  6. RESTASIS [Concomitant]
     Indication: DRY EYE
     Route: 047
  7. VITAMIN D [Concomitant]

REACTIONS (1)
  - MADAROSIS [None]
